FAERS Safety Report 25264409 (Version 2)
Quarter: 2025Q2

REPORT INFORMATION
  Report Type: Spontaneous
  Country: JP (occurrence: JP)
  Receive Date: 20250502
  Receipt Date: 20250530
  Transmission Date: 20250716
  Serious: No
  Sender: GALDERMA
  Company Number: JP-GALDERMA-JP2025002870

PATIENT

DRUGS (3)
  1. NEMOLIZUMAB [Suspect]
     Active Substance: NEMOLIZUMAB
     Indication: Dermatitis atopic
     Route: 058
     Dates: start: 20250213, end: 20250213
  2. CLOBETASOL [Concomitant]
     Active Substance: CLOBETASOL
     Indication: Dermatitis atopic
     Route: 061
     Dates: start: 20250213
  3. Heparinoid [Concomitant]
     Indication: Dermatitis atopic
     Route: 061
     Dates: start: 202405

REACTIONS (1)
  - Drug eruption [Recovered/Resolved]

NARRATIVE: CASE EVENT DATE: 20250217
